FAERS Safety Report 16864995 (Version 1)
Quarter: 2019Q3

REPORT INFORMATION
  Report Type: Spontaneous
  Country: CO (occurrence: CO)
  Receive Date: 20190929
  Receipt Date: 20190929
  Transmission Date: 20191005
  Serious: Yes (Other)
  Sender: FDA-Public Use
  Company Number: CO-009507513-1909COL010098

PATIENT
  Age: 50 Year
  Sex: Male

DRUGS (1)
  1. RALTEGRAVIR POTASSIUM [Suspect]
     Active Substance: RALTEGRAVIR POTASSIUM
     Dosage: 400 MILLIGRAM, UNKNOWN
     Route: 048

REACTIONS (1)
  - Pathogen resistance [Not Recovered/Not Resolved]
